FAERS Safety Report 8669585 (Version 3)
Quarter: 2013Q3

REPORT INFORMATION
  Report Type: Spontaneous
  Country: US (occurrence: US)
  Receive Date: 20120718
  Receipt Date: 20130725
  Transmission Date: 20140515
  Serious: Yes (Other)
  Sender: FDA-Public Use
  Company Number: US-PFIZER INC-2012169402

PATIENT
  Age: 18 Year
  Sex: Female

DRUGS (13)
  1. ETHINYL ESTRADIOL\NORGESTREL [Suspect]
     Indication: CONTRACEPTION
     Dosage: 1 DF (0.3-0.03 MG), 1X/DAY
     Route: 048
     Dates: start: 20110518
  2. ETHINYL ESTRADIOL\NORGESTREL [Suspect]
     Dosage: 1 DF (0.3-0.03 MG), 1X/DAY
     Route: 048
  3. ETHINYL ESTRADIOL\NORGESTREL [Suspect]
     Dosage: 1 DF (0.3-0.03 MG), 1X/DAY
     Route: 048
  4. ETHINYL ESTRADIOL\NORGESTREL [Suspect]
     Dosage: 1 DF (0.3-0.03 MG), 1X/DAY
     Route: 048
  5. ETHINYL ESTRADIOL\NORGESTREL [Suspect]
     Dosage: 1 DF (0.3-0.03 MG), 1X/DAY
     Route: 048
  6. ETHINYL ESTRADIOL\NORGESTREL [Suspect]
     Dosage: 1 DF (0.3-0.03 MG), 1X/DAY
     Route: 048
  7. ETHINYL ESTRADIOL\NORGESTREL [Suspect]
     Dosage: 1 DF (0.3-0.03 MG), 1X/DAY
     Route: 048
  8. ETHINYL ESTRADIOL\NORGESTREL [Suspect]
     Dosage: 1 DF (0.3-0.03 MG), 1X/DAY
     Route: 048
  9. ETHINYL ESTRADIOL\NORGESTREL [Suspect]
     Dosage: 1 DF (0.3-0.03 MG), 1X/DAY
     Route: 048
  10. ETHINYL ESTRADIOL\NORGESTREL [Suspect]
     Dosage: 1 DF (0.3-0.03 MG), 1X/DAY
     Route: 048
  11. ETHINYL ESTRADIOL\NORGESTREL [Suspect]
     Dosage: 1 DF (0.3-0.03 MG), 1X/DAY
     Route: 048
  12. ETHINYL ESTRADIOL\NORGESTREL [Suspect]
     Dosage: 1 DF (0.3-0.03 MG), 1X/DAY
     Route: 048
  13. ETHINYL ESTRADIOL\NORGESTREL [Suspect]
     Dosage: 1 DF (0.3-0.03 MG), 1X/DAY
     Route: 048
     Dates: end: 20120215

REACTIONS (3)
  - Product quality issue [Unknown]
  - Drug ineffective [Unknown]
  - Unintended pregnancy [Unknown]
